FAERS Safety Report 7520318-3 (Version None)
Quarter: 2011Q2

REPORT INFORMATION
  Report Type: 
  Country: None (occurrence: None)
  Receive Date: 20110602
  Receipt Date: 20110518
  Transmission Date: 20111010
  Serious: Yes (Other)
  Sender: FDA-Public Use
  Company Number: CA-GENENTECH-287000

PATIENT
  Sex: Male
  Weight: 35.8 kg

DRUGS (4)
  1. XOLAIR [Suspect]
     Dosage: 375 MG, Q2W
     Dates: start: 20090930
  2. XOLAIR [Suspect]
     Indication: ASTHMA
     Dosage: 375 MG, Q2W
     Route: 058
     Dates: start: 20080930
  3. XOLAIR [Suspect]
     Dosage: 375 MG, UNK
     Dates: start: 20100120
  4. XOLAIR [Suspect]
     Dosage: 375 MG, Q2W
     Route: 058
     Dates: start: 20090902

REACTIONS (3)
  - HYPERSENSITIVITY [None]
  - BODY TEMPERATURE DECREASED [None]
  - BLOOD PRESSURE DECREASED [None]
